FAERS Safety Report 6169619-4 (Version None)
Quarter: 2009Q2

REPORT INFORMATION
  Report Type: 
  Country: None (occurrence: None)
  Receive Date: 20090424
  Receipt Date: 20090201
  Transmission Date: 20091009
  Serious: No
  Sender: FDA-Public Use
  Company Number: ALL1-2009-00252

PATIENT
  Age: 15 Year
  Sex: Male
  Weight: 55.8 kg

DRUGS (2)
  1. VYVANSE [Suspect]
     Indication: ATTENTION DEFICIT/HYPERACTIVITY DISORDER
     Dosage: 30 MG, 1X/DAY, QD (MONDAY-FRIDAY), ORAL, 60 MG, 1X/DAY, QD, ADMINISTERED AS 2X30MG CAPSULES, ORAL
     Route: 048
     Dates: start: 20090127, end: 20090130
  2. VYVANSE [Suspect]
     Indication: ATTENTION DEFICIT/HYPERACTIVITY DISORDER
     Dosage: 30 MG, 1X/DAY, QD (MONDAY-FRIDAY), ORAL, 60 MG, 1X/DAY, QD, ADMINISTERED AS 2X30MG CAPSULES, ORAL
     Route: 048
     Dates: start: 20090201

REACTIONS (3)
  - DISTURBANCE IN SOCIAL BEHAVIOUR [None]
  - IRRITABILITY [None]
  - OFF LABEL USE [None]
